FAERS Safety Report 8107365-8 (Version None)
Quarter: 2012Q1

REPORT INFORMATION
  Report Type: 
  Country: None (occurrence: None)
  Receive Date: 20120202
  Receipt Date: 20120125
  Transmission Date: 20120608
  Serious: Yes (Hospitalization, Other)
  Sender: FDA-Public Use
  Company Number: FR-PFIZER INC-2012020048

PATIENT
  Age: 78 Year
  Sex: Female
  Weight: 78 kg

DRUGS (6)
  1. LYRICA [Suspect]
     Dosage: 25 MG IN THE MORNING AND EVENING AND 75MG DAILY IN THE EVENING
     Route: 048
     Dates: start: 20110301, end: 20110312
  2. COUMADIN [Concomitant]
     Dosage: UNK
     Route: 048
     Dates: end: 20110312
  3. DIGOXIN [Concomitant]
     Dosage: 0.25 MG, 1X/DAY IN THE MORNING
     Route: 048
     Dates: end: 20110312
  4. ATACAND [Concomitant]
     Dosage: 16 MG, 1X/DAY IN THE MORNING
     Route: 048
  5. ACETAMINOPHEN [Concomitant]
     Dosage: (500MG TABLET) DOSE:1 G, 3X/DAY IF NEEDED
     Route: 048
  6. ESIDRIX [Concomitant]
     Dosage: (25MG TABLET) DOSE:12.5 MG DOSE, 1X/DAY IN THE MORNING
     Route: 048

REACTIONS (6)
  - FALL [None]
  - HAEMATOMA [None]
  - MUSCULAR WEAKNESS [None]
  - INTERNATIONAL NORMALISED RATIO INCREASED [None]
  - PAIN [None]
  - LEUKOCYTOSIS [None]
